FAERS Safety Report 15183446 (Version 1)
Quarter: 2018Q3

REPORT INFORMATION
  Report Type: Spontaneous
  Country: US (occurrence: US)
  Receive Date: 20180723
  Receipt Date: 20180723
  Transmission Date: 20181010
  Serious: Yes (Other)
  Sender: FDA-Public Use
  Company Number: PHHY2018US045309

PATIENT
  Age: 42 Year
  Sex: Male

DRUGS (1)
  1. VALACICLOVIR [Suspect]
     Active Substance: VALACYCLOVIR HYDROCHLORIDE
     Indication: ORAL HERPES
     Dosage: 4 G, ONCE/SINGLE
     Route: 065

REACTIONS (4)
  - Renal impairment [Recovered/Resolved]
  - Dizziness [Unknown]
  - Nausea [Unknown]
  - Flank pain [Unknown]
